FAERS Safety Report 7131321-X (Version None)
Quarter: 2010Q4

REPORT INFORMATION
  Report Type: 
  Country: None (occurrence: None)
  Receive Date: 20101201
  Receipt Date: 20101119
  Transmission Date: 20110411
  Serious: Yes (Hospitalization)
  Sender: FDA-Public Use
  Company Number: DE-PFIZER INC-2010160560

PATIENT
  Age: 54 Year
  Sex: Female

DRUGS (7)
  1. SERTRALINE HYDROCHLORIDE [Suspect]
     Dosage: 25 MG, 1X/DAY
     Route: 048
     Dates: start: 20100830, end: 20100831
  2. SERTRALINE HYDROCHLORIDE [Suspect]
     Dosage: 50 MG, 1X/DAY
     Route: 048
     Dates: start: 20100901, end: 20100907
  3. SERTRALINE HYDROCHLORIDE [Suspect]
     Dosage: 100 MG, 1X/DAY
     Route: 048
     Dates: start: 20100908, end: 20100913
  4. METOPROLOL [Concomitant]
     Dosage: 75 MG, 1X/DAY
     Dates: start: 20050101
  5. JODID [Concomitant]
     Dosage: 200 MCG, 1X/DAY
     Dates: start: 19800101
  6. OPIPRAMOL [Concomitant]
     Dosage: 100 MG, 1X/DAY
     Dates: end: 20100906
  7. ENTOCORT EC [Concomitant]
     Dosage: 1.5 MG, 1X/DAY
     Dates: start: 20040101, end: 20100912

REACTIONS (2)
  - DERMATITIS ALLERGIC [None]
  - RASH [None]
